FAERS Safety Report 7813483-1 (Version None)
Quarter: 2011Q4

REPORT INFORMATION
  Report Type: 
  Country: None (occurrence: None)
  Receive Date: 20111014
  Receipt Date: 20111011
  Transmission Date: 20120403
  Serious: No
  Sender: FDA-Public Use
  Company Number: US-BIOGENIDEC-2011BI035732

PATIENT
  Age: 56 Year
  Sex: Female

DRUGS (1)
  1. TYSABRI [Suspect]
     Indication: MULTIPLE SCLEROSIS
     Route: 042
     Dates: start: 20110517

REACTIONS (6)
  - UHTHOFF'S PHENOMENON [None]
  - MUSCLE SPASTICITY [None]
  - ROTATOR CUFF SYNDROME [None]
  - HYPERAESTHESIA [None]
  - FEELING HOT [None]
  - SENSATION OF HEAVINESS [None]
